FAERS Safety Report 9764259 (Version 1)
Quarter: 2013Q4

REPORT INFORMATION
  Report Type: Spontaneous
  Country: US (occurrence: US)
  Receive Date: 20131216
  Receipt Date: 20131216
  Transmission Date: 20140711
  Serious: No
  Sender: FDA-Public Use
  Company Number: US-009507513-1312USA006409

PATIENT
  Age: 72 Year
  Sex: Female

DRUGS (2)
  1. TEMODAR [Suspect]
     Indication: SMALL CELL LUNG CANCER
     Dosage: 140 MG, QD
     Route: 048
     Dates: start: 20131206
  2. MORPHINE [Concomitant]

REACTIONS (4)
  - Constipation [Not Recovered/Not Resolved]
  - Platelet count decreased [Not Recovered/Not Resolved]
  - Fatigue [Not Recovered/Not Resolved]
  - Asthenia [Not Recovered/Not Resolved]
